FAERS Safety Report 6294366-8 (Version None)
Quarter: 2009Q3

REPORT INFORMATION
  Report Type: 
  Country: None (occurrence: None)
  Receive Date: 20090803
  Receipt Date: 20090724
  Transmission Date: 20100115
  Serious: Yes (Other)
  Sender: FDA-Public Use
  Company Number: JP-PFIZER INC-2009247747

PATIENT
  Age: 73 Year

DRUGS (3)
  1. SUNITINIB MALATE [Suspect]
     Indication: RENAL CELL CARCINOMA
     Dosage: 50 MG, 1X/DAY
     Route: 048
     Dates: start: 20090527
  2. BLOPRESS [Concomitant]
     Dosage: UNK
     Route: 048
     Dates: start: 20090530
  3. ADALAT [Concomitant]
     Dosage: UNK
     Route: 048
     Dates: start: 20090602

REACTIONS (3)
  - ANAEMIA [None]
  - LUNG DISORDER [None]
  - WHITE BLOOD CELL COUNT DECREASED [None]
